FAERS Safety Report 4372979-8 (Version None)
Quarter: 2004Q2

REPORT INFORMATION
  Report Type: 
  Country: None (occurrence: None)
  Receive Date: 20040603
  Receipt Date: 20040514
  Transmission Date: 20050107
  Serious: Yes (Hospitalization)
  Sender: FDA-Public Use
  Company Number: USA040567670

PATIENT
  Age: 16 Year
  Sex: Male
  Weight: 75 kg

DRUGS (4)
  1. STRATTERA [Suspect]
     Dosage: 40 MG IN THE MORNING
  2. LEXAPRO [Concomitant]
  3. SEROQUEL [Concomitant]
  4. RANIDINE (RANITIDINE) [Concomitant]

REACTIONS (2)
  - ABNORMAL BEHAVIOUR [None]
  - DRUG SCREEN POSITIVE [None]
